FAERS Safety Report 9011282 (Version 1)
Quarter: 2013Q1

REPORT INFORMATION
  Report Type: Report from Study
  Country: JP (occurrence: JP)
  Receive Date: 20130109
  Receipt Date: 20130109
  Transmission Date: 20140127
  Serious: Yes (Death, Hospitalization)
  Sender: FDA-Public Use
  Company Number: JP-009507513-2012SP002056

PATIENT
  Age: 57 Year
  Sex: Male
  Weight: 63 kg

DRUGS (34)
  1. TEMOZOLOMIDE [Suspect]
     Indication: ANAPLASTIC ASTROCYTOMA
     Dosage: 150 MG/M2, QD
     Route: 048
     Dates: start: 20061129, end: 20061203
  2. TEMOZOLOMIDE [Suspect]
     Dosage: 200 MG/M2, QD
     Route: 048
     Dates: start: 20061227, end: 20061231
  3. TEMOZOLOMIDE [Suspect]
     Dosage: 200 MG/M2, QD
     Route: 048
     Dates: start: 20070124, end: 20070128
  4. TEMOZOLOMIDE [Suspect]
     Dosage: 200 MG/M2, QD
     Route: 048
     Dates: start: 20070221, end: 20070225
  5. TEMOZOLOMIDE [Suspect]
     Dosage: 200 MG/M2, QD
     Route: 048
     Dates: start: 20070321, end: 20070325
  6. TEMOZOLOMIDE [Suspect]
     Dosage: 200 MG/M2, QD
     Route: 048
     Dates: start: 20070418, end: 20070422
  7. TEMOZOLOMIDE [Suspect]
     Dosage: 200 MG/M2, QD
     Route: 048
     Dates: start: 20090127, end: 20090131
  8. TEMOZOLOMIDE [Suspect]
     Dosage: 200 MG/M2, QD
     Route: 048
     Dates: start: 20090224, end: 20090228
  9. TEMOZOLOMIDE [Suspect]
     Dosage: 200 MG/M2, QD
     Route: 048
     Dates: start: 20090324, end: 20090328
  10. TEMOZOLOMIDE [Suspect]
     Dosage: 200 MG/M2, QD
     Route: 048
     Dates: start: 20090421, end: 20090425
  11. TEMOZOLOMIDE [Suspect]
     Dosage: 200 MG/M2, QD
     Route: 048
     Dates: start: 20090519, end: 20090523
  12. TEMOZOLOMIDE [Suspect]
     Dosage: 200 MG/M2, QD
     Route: 048
     Dates: start: 20090616, end: 20090620
  13. TEMOZOLOMIDE [Suspect]
     Dosage: 200 MG/M2, QD
     Route: 048
     Dates: start: 20090714, end: 20090718
  14. TEMOZOLOMIDE [Suspect]
     Dosage: 200 MG/M2, QD
     Route: 048
     Dates: start: 20090811, end: 20090815
  15. TEMOZOLOMIDE [Suspect]
     Dosage: 200 MG/M2, QD
     Route: 048
     Dates: start: 20090908, end: 20090912
  16. TEMOZOLOMIDE [Suspect]
     Dosage: 200 MG/M2, QD
     Route: 048
     Dates: start: 20091013, end: 20091017
  17. TEMOZOLOMIDE [Suspect]
     Dosage: 200 MG/M2, QD
     Route: 048
     Dates: start: 20091110, end: 20091114
  18. TEMOZOLOMIDE [Suspect]
     Dosage: 200 MG/M2, QD
     Route: 048
     Dates: start: 20091208, end: 20091212
  19. TEMOZOLOMIDE [Suspect]
     Dosage: 200 MG/M2, QD
     Route: 048
     Dates: start: 20100105, end: 20100109
  20. TEMOZOLOMIDE [Suspect]
     Dosage: 200 MG/M2, QD
     Route: 048
     Dates: start: 20100202, end: 20100206
  21. TEMOZOLOMIDE [Suspect]
     Dosage: 200 MG/M2, QD
     Route: 048
     Dates: start: 20100302, end: 20100306
  22. TEMOZOLOMIDE [Suspect]
     Dosage: 200 MG/M2, QD
     Route: 048
     Dates: start: 20100330, end: 20100403
  23. TEMOZOLOMIDE [Suspect]
     Dosage: 200 MG/M2, QD
     Route: 048
     Dates: start: 20100427, end: 20100501
  24. TEMOZOLOMIDE [Suspect]
     Dosage: 200 MG/M2, QD
     Route: 048
     Dates: start: 20100525, end: 20100529
  25. TEMOZOLOMIDE [Suspect]
     Dosage: 200 MG/M2, QD
     Route: 048
     Dates: start: 20100623, end: 20100627
  26. TEMOZOLOMIDE [Suspect]
     Dosage: 200 MG/M2, QD
     Route: 048
     Dates: start: 20100721, end: 20100725
  27. TEMOZOLOMIDE [Suspect]
     Dosage: 200 MG/M2, QD
     Route: 048
     Dates: start: 20100818, end: 20100822
  28. BAKTAR [Concomitant]
     Indication: ANTIFUNGAL PROPHYLAXIS
     Dosage: DAILY DOSE UNKNOWN
     Route: 048
     Dates: start: 20070306, end: 20070312
  29. BAKTAR [Concomitant]
     Dosage: DAILY DOSE UNKNOWN
     Route: 048
     Dates: start: 20100216, end: 20100302
  30. DEPAKENE [Concomitant]
     Dosage: DAILY DOSE UNKNOWN
     Route: 048
  31. ZOFRAN ZYDIS [Concomitant]
     Indication: PROPHYLAXIS
     Dosage: DAILY DOSE UNKNOWN
     Route: 048
     Dates: start: 20061129, end: 20070422
  32. VOLTAREN [Concomitant]
     Indication: PROPHYLAXIS
     Dosage: DAILY DOSE UNKNOWN
     Route: 054
     Dates: start: 20091208, end: 20101028
  33. FERON [Concomitant]
     Dosage: DAILY DOSE UNKNOWN
     Route: 041
     Dates: start: 20091208, end: 20100821
  34. DECADRON [Concomitant]
     Dosage: DAILY DOSE UNKNOWN
     Route: 048
     Dates: start: 20100705, end: 20101228

REACTIONS (10)
  - Sepsis [Recovering/Resolving]
  - Disease progression [Fatal]
  - Hepatic function abnormal [Recovered/Resolved]
  - Haematuria [Recovered/Resolved]
  - Hyperkalaemia [Recovered/Resolved]
  - Hyperlipidaemia [Recovered/Resolved]
  - Cystitis [Recovered/Resolved]
  - Upper respiratory tract inflammation [Recovered/Resolved]
  - Convulsion [Recovered/Resolved]
  - Constipation [Recovering/Resolving]
